FAERS Safety Report 9282240 (Version 1)
Quarter: 2013Q2

REPORT INFORMATION
  Report Type: Spontaneous
  Country: US (occurrence: US)
  Receive Date: 20130510
  Receipt Date: 20130510
  Transmission Date: 20140414
  Serious: Yes (Other)
  Sender: FDA-Public Use
  Company Number: US-PFIZER INC-2013141635

PATIENT
  Age: 85 Year
  Sex: Female
  Weight: 68.03 kg

DRUGS (4)
  1. CELEBREX [Suspect]
     Indication: ARTHRALGIA
     Dosage: 200 MG, 1X/DAY
     Route: 048
     Dates: start: 20130227, end: 20130423
  2. VASOTEC [Concomitant]
     Indication: HYPERTENSION
     Dosage: UNK, 2X/DAY
  3. DIGOXIN [Concomitant]
     Dosage: 0.25 MG, 1X/DAY
  4. HYDROCHLOROTHIAZIDE/TRIAMTERENE [Concomitant]
     Dosage: 25/37.5 MG, 1X/DAY

REACTIONS (4)
  - Hypertension [Recovered/Resolved]
  - Pain [Unknown]
  - Drug effect delayed [Unknown]
  - Dysgeusia [Unknown]
